FAERS Safety Report 9293467 (Version 1)
Quarter: 2013Q2

REPORT INFORMATION
  Report Type: Spontaneous
  Country: US (occurrence: US)
  Receive Date: 20130516
  Receipt Date: 20130516
  Transmission Date: 20140414
  Serious: Yes (Hospitalization, Other)
  Sender: FDA-Public Use
  Company Number: CHPA2013US008278

PATIENT
  Age: 79 Year
  Sex: Male

DRUGS (2)
  1. VOLTAREN GEL [Suspect]
     Indication: INSOMNIA
     Dosage: UNK, BID
     Route: 061
     Dates: start: 2011
  2. VOLTAREN GEL [Suspect]
     Indication: PAIN

REACTIONS (5)
  - Blood potassium increased [Unknown]
  - Hallucination [Unknown]
  - Off label use [Unknown]
  - Therapeutic response unexpected [Unknown]
  - Drug administered at inappropriate site [Unknown]
